FAERS Safety Report 15066778 (Version 1)
Quarter: 2018Q2

REPORT INFORMATION
  Report Type: Spontaneous
  Country: GB (occurrence: GB)
  Receive Date: 20180626
  Receipt Date: 20180626
  Transmission Date: 20180711
  Serious: Yes (Other)
  Sender: FDA-Public Use
  Company Number: GB-ASTRAZENECA-2018SE81416

PATIENT
  Age: 60 Year
  Sex: Female

DRUGS (2)
  1. SIMVASTATIN. [Concomitant]
     Active Substance: SIMVASTATIN
  2. OMEPRAZOLE. [Suspect]
     Active Substance: OMEPRAZOLE
     Indication: COUGH
     Route: 048
     Dates: start: 20180604, end: 20180606

REACTIONS (6)
  - Headache [Unknown]
  - Photophobia [Unknown]
  - Fatigue [Unknown]
  - Neck pain [Unknown]
  - Thirst [Unknown]
  - Dizziness [Unknown]

NARRATIVE: CASE EVENT DATE: 20180604
